FAERS Safety Report 12406701 (Version 2)
Quarter: 2016Q2

REPORT INFORMATION
  Report Type: Spontaneous
  Country: FR (occurrence: FR)
  Receive Date: 20160526
  Receipt Date: 20160613
  Transmission Date: 20160815
  Serious: Yes (Death, Congenital Anomaly)
  Sender: FDA-Public Use
  Company Number: FR-ABBVIE-16P-056-1637130-00

PATIENT
  Sex: Male

DRUGS (1)
  1. DEPAKOTE [Suspect]
     Active Substance: DIVALPROEX SODIUM
     Indication: MATERNAL EXPOSURE TIMING UNSPECIFIED
     Route: 064

REACTIONS (6)
  - Foetal exposure during pregnancy [Unknown]
  - Spina bifida [Fatal]
  - Cyanosis [Fatal]
  - Premature baby [Fatal]
  - Microcephaly [Fatal]
  - Respiratory arrest [Fatal]

NARRATIVE: CASE EVENT DATE: 2014
